FAERS Safety Report 12263651 (Version 1)
Quarter: 2016Q2

REPORT INFORMATION
  Report Type: Report from Study
  Country: VE (occurrence: VE)
  Receive Date: 20160413
  Receipt Date: 20160413
  Transmission Date: 20160815
  Serious: Yes (Life-Threatening, Hospitalization, Other)
  Sender: FDA-Public Use
  Company Number: VE-ABBVIE-13P-178-1089609-00

PATIENT
  Age: 51 Year
  Sex: Male
  Weight: 110 kg

DRUGS (1)
  1. HUMIRA [Suspect]
     Active Substance: ADALIMUMAB
     Indication: PSORIASIS
     Route: 058
     Dates: start: 201004

REACTIONS (3)
  - Rhinorrhoea [Not Recovered/Not Resolved]
  - Tuberculin test positive [Recovered/Resolved]
  - Ischaemic stroke [Recovered/Resolved]

NARRATIVE: CASE EVENT DATE: 20121001
